FAERS Safety Report 13685288 (Version 3)
Quarter: 2017Q3

REPORT INFORMATION
  Report Type: Spontaneous
  Country: JP (occurrence: JP)
  Receive Date: 20170623
  Receipt Date: 20170810
  Transmission Date: 20171127
  Serious: Yes (Other)
  Sender: FDA-Public Use
  Company Number: JP-GLAXOSMITHKLINE-JP2017JPN094853

PATIENT
  Age: 7 Day
  Sex: Female
  Weight: 2.58 kg

DRUGS (13)
  1. EPZICOM [Suspect]
     Active Substance: ABACAVIR SULFATE\LAMIVUDINE
     Dosage: 1 DF, QD
     Route: 064
     Dates: start: 20141003, end: 20160120
  2. FENTANYL. [Concomitant]
     Active Substance: FENTANYL
     Dosage: 0.7 MG, CO
     Route: 064
     Dates: start: 20160608, end: 20160608
  3. ZIAGEN [Suspect]
     Active Substance: ABACAVIR SULFATE
     Dosage: 600 MG, QD
     Route: 064
     Dates: start: 20160121, end: 20160302
  4. ACICLOVIR [Concomitant]
     Active Substance: ACYCLOVIR
     Dosage: 500 MG, TID
     Route: 064
     Dates: start: 20160201, end: 20160207
  5. KAYTWO [Concomitant]
     Active Substance: MENATETRENONE
     Indication: HAEMORRHAGE PROPHYLAXIS
     Dosage: 1 ML, 1D
     Route: 048
     Dates: start: 20160711, end: 20160711
  6. TIVICAY [Suspect]
     Active Substance: DOLUTEGRAVIR SODIUM
     Dosage: 50 MG, UNK
     Route: 064
     Dates: start: 20160121, end: 20160302
  7. EPIVIR [Suspect]
     Active Substance: LAMIVUDINE
     Dosage: 300 MG, QD
     Route: 064
     Dates: start: 20160121, end: 20160302
  8. RETROVIR [Suspect]
     Active Substance: ZIDOVUDINE
     Dosage: 400 MG, SINGLE
     Route: 064
     Dates: start: 20160608, end: 20160608
  9. PREZISTANAIVE [Concomitant]
     Active Substance: DARUNAVIR
     Dosage: 800 MG, QD
     Route: 064
     Dates: start: 20141003, end: 20160120
  10. CEFAZOLIN SODIUM. [Concomitant]
     Active Substance: CEFAZOLIN SODIUM
     Dosage: 1 MG, QD
     Route: 064
     Dates: start: 20160608
  11. RETROVIR [Concomitant]
     Active Substance: ZIDOVUDINE
     Indication: ANTIVIRAL PROPHYLAXIS
     Dosage: 4 ML, 1D
     Route: 048
     Dates: start: 20160610, end: 20160720
  12. ABACAVIRSULPHATE+DOLUTEGRAVIR+LAMIVUDINE [Suspect]
     Active Substance: ABACAVIR SULFATE\DOLUTEGRAVIR SODIUM\LAMIVUDINE
     Dosage: 1 DF, 1D
     Route: 064
     Dates: start: 20160302, end: 20160608
  13. RITONAVIR. [Concomitant]
     Active Substance: RITONAVIR
     Dosage: 100 MG, QD
     Route: 064
     Dates: start: 20141003, end: 20160120

REACTIONS (2)
  - Ventricular septal defect [Recovered/Resolved]
  - Foetal exposure during pregnancy [Unknown]

NARRATIVE: CASE EVENT DATE: 20160615
